FAERS Safety Report 8145128-8 (Version None)
Quarter: 2012Q1

REPORT INFORMATION
  Report Type: 
  Country: None (occurrence: None)
  Receive Date: 20120217
  Receipt Date: 20120214
  Transmission Date: 20120608
  Serious: Yes (Death, Other)
  Sender: FDA-Public Use
  Company Number: PHEH2011US05948

PATIENT
  Sex: Female
  Weight: 49 kg

DRUGS (7)
  1. XOPENEX [Concomitant]
     Indication: CYSTIC FIBROSIS
     Dosage: 1.25/ 3 ML Q6H
  2. OXYCODONE HCL [Concomitant]
     Indication: PAIN
     Dosage: 10 MG, Q6H
     Route: 048
  3. ASCORBIC ACID [Concomitant]
     Indication: CYSTIC FIBROSIS
     Dosage: 250 MG, QD
     Route: 048
  4. TOBI [Suspect]
     Indication: PSEUDOMONAS INFECTION
     Dosage: 300 MG, BID EVERY OTHER MONTH
     Dates: start: 20101123
  5. TOBI [Suspect]
     Indication: RENAL FAILURE ACUTE
     Dosage: 300 MG, BID
     Dates: start: 20110801
  6. PULMOZYME [Concomitant]
     Indication: CYSTIC FIBROSIS
     Dosage: 2.5 MG, BID
  7. INSULIN [Concomitant]
     Indication: CYSTIC FIBROSIS
     Dosage: 8 U, QD
     Route: 058

REACTIONS (20)
  - ILEUS [None]
  - ABDOMINAL PAIN [None]
  - RESPIRATORY DISTRESS [None]
  - PANCREATIC INSUFFICIENCY [None]
  - HYPERGLYCAEMIA [None]
  - DEPRESSION [None]
  - CARDIAC ARREST [None]
  - PAIN [None]
  - APNOEIC ATTACK [None]
  - INFECTIVE PULMONARY EXACERBATION OF CYSTIC FIBROSIS [None]
  - NEPHROLITHIASIS [None]
  - ADRENAL INSUFFICIENCY [None]
  - MALNUTRITION [None]
  - ANXIETY DISORDER [None]
  - RESPIRATORY FAILURE [None]
  - RENAL FAILURE CHRONIC [None]
  - DECUBITUS ULCER [None]
  - HYPERKALAEMIA [None]
  - HYPOTENSION [None]
  - ANAEMIA [None]
